FAERS Safety Report 6220071-X (Version None)
Quarter: 2009Q2

REPORT INFORMATION
  Report Type: 
  Country: None (occurrence: None)
  Receive Date: 20090609
  Receipt Date: 20090605
  Transmission Date: 20091009
  Serious: Yes (Life-Threatening, Hospitalization, Other)
  Sender: FDA-Public Use
  Company Number: PHHY2009JP17682

PATIENT
  Sex: Male
  Weight: 50 kg

DRUGS (4)
  1. TEGRETOL [Suspect]
     Indication: CONVULSION
     Dosage: 100 MG/DAY
     Route: 048
     Dates: start: 20090501, end: 20090503
  2. ALEVIATIN [Suspect]
     Indication: CONVULSION
     Dosage: 250 MG, UNK
     Route: 048
     Dates: start: 20080901, end: 20090503
  3. PHENOBARBITAL TAB [Suspect]
     Indication: CONVULSION
     Dosage: 100 MG DAILY
     Route: 030
     Dates: start: 20090501, end: 20090501
  4. TEMODAL [Concomitant]
     Dosage: 300 MG/DAY
     Route: 048
     Dates: start: 20090403, end: 20090407

REACTIONS (10)
  - ABDOMINAL DISCOMFORT [None]
  - ATELECTASIS [None]
  - CONVULSION [None]
  - GAMMA-GLUTAMYLTRANSFERASE INCREASED [None]
  - HEPATITIS FULMINANT [None]
  - INFLAMMATION [None]
  - JAUNDICE [None]
  - MALAISE [None]
  - PNEUMONIA [None]
  - RENAL FAILURE ACUTE [None]
